FAERS Safety Report 13711376 (Version 1)
Quarter: 2017Q3

REPORT INFORMATION
  Report Type: Spontaneous
  Country: SE (occurrence: SE)
  Receive Date: 20170703
  Receipt Date: 20170703
  Transmission Date: 20171127
  Serious: Yes (Other)
  Sender: FDA-Public Use
  Company Number: SE-MYLANLABS-2017M1038361

PATIENT

DRUGS (1)
  1. AZATIOPRIN MYLAN 50 MG TABLETTER [Suspect]
     Active Substance: AZATHIOPRINE
     Indication: COLITIS ULCERATIVE
     Dosage: 50 MG, BID

REACTIONS (8)
  - Medication error [Unknown]
  - Memory impairment [Unknown]
  - Feeling abnormal [Unknown]
  - Abdominal discomfort [Unknown]
  - Fall [Unknown]
  - Extra dose administered [Unknown]
  - Drug dose omission [Unknown]
  - Loss of consciousness [Unknown]
